FAERS Safety Report 8328054-0 (Version None)
Quarter: 2012Q2

REPORT INFORMATION
  Report Type: 
  Country: None (occurrence: None)
  Receive Date: 20120502
  Receipt Date: 20120423
  Transmission Date: 20120825
  Serious: Yes (Other)
  Sender: FDA-Public Use
  Company Number: PHHY2012JP017762

PATIENT
  Age: 74 Year
  Sex: Female

DRUGS (5)
  1. NEORAL [Suspect]
     Indication: INTERSTITIAL LUNG DISEASE
     Dosage: 150 MG, DAILY
     Route: 048
     Dates: start: 20100301, end: 20110401
  2. STEROIDS NOS [Concomitant]
  3. CYCLOPHOSPHAMIDE [Concomitant]
     Dosage: UNK UKN, UNK
     Route: 042
  4. PREDNISOLONE [Concomitant]
     Dosage: 50 MG, UNK
  5. PREDNISOLONE [Concomitant]
     Dosage: 10 MG, UNK

REACTIONS (2)
  - GASTRIC CANCER [None]
  - HEPATIC FUNCTION ABNORMAL [None]
